FAERS Safety Report 19764205 (Version 2)
Quarter: 2023Q2

REPORT INFORMATION
  Report Type: Spontaneous
  Country: RO (occurrence: RO)
  Receive Date: 20210830
  Receipt Date: 20230522
  Transmission Date: 20230721
  Serious: Yes (Other)
  Sender: FDA-Public Use
  Company Number: RO-ROCHE-2786586

PATIENT
  Age: 38 Year
  Sex: Female

DRUGS (6)
  1. TRASTUZUMAB [Suspect]
     Active Substance: TRASTUZUMAB
     Indication: Breast cancer
     Dosage: UNK UNK, Q3W
     Route: 058
  2. KADCYLA [Suspect]
     Active Substance: ADO-TRASTUZUMAB EMTANSINE
     Indication: Breast cancer
     Dosage: 4 CYCLES
     Route: 042
     Dates: start: 20200810, end: 20201012
  3. KADCYLA [Suspect]
     Active Substance: ADO-TRASTUZUMAB EMTANSINE
     Dosage: 6 CYCLES
     Route: 042
     Dates: start: 20201118, end: 20210310
  4. PERJETA [Suspect]
     Active Substance: PERTUZUMAB
     Indication: Breast cancer
     Dosage: 420 MILLIGRAM
     Route: 042
     Dates: start: 20200415, end: 20200617
  5. LETROZOLE [Concomitant]
     Active Substance: LETROZOLE
     Dosage: UNK, QD
     Route: 065
  6. GOSERELIN [Concomitant]
     Active Substance: GOSERELIN
     Dosage: UNK, QD
     Route: 065

REACTIONS (3)
  - Neuropathy peripheral [Unknown]
  - COVID-19 [Recovered/Resolved]
  - Exposure during pregnancy [Unknown]

NARRATIVE: CASE EVENT DATE: 20201030
